FAERS Safety Report 17212735 (Version 1)
Quarter: 2019Q4

REPORT INFORMATION
  Report Type: Spontaneous
  Country: DE (occurrence: DE)
  Receive Date: 20191230
  Receipt Date: 20191230
  Transmission Date: 20200122
  Serious: Yes (Hospitalization)
  Sender: FDA-Public Use
  Company Number: DE-TEVA-2019-DE-1158727

PATIENT
  Age: 77 Year
  Sex: Female

DRUGS (7)
  1. ACETYLSALICYLS?URE [Concomitant]
     Active Substance: ASPIRIN
     Dosage: 100 MILLIGRAM DAILY; 100 MG, 0-1-0-0
  2. METAMIZOL [Concomitant]
     Active Substance: METAMIZOLE SODIUM
     Dosage: 2000 MILLIGRAM DAILY; 500 MG, 1-1-1-1
  3. PREGABALIN. [Suspect]
     Active Substance: PREGABALIN
     Dosage: 100 MILLIGRAM DAILY; 50 MG, 1-0-1-0
  4. METOPROLOL. [Suspect]
     Active Substance: METOPROLOL
     Dosage: 23.75 MILLIGRAM DAILY; 23.75 MG, 0-1-0-0
  5. ALLOPURINOL. [Concomitant]
     Active Substance: ALLOPURINOL
     Dosage: 100 MILLIGRAM DAILY; 100 MG, 1-0-0-0
  6. FUROSEMID [Concomitant]
     Active Substance: FUROSEMIDE
     Dosage: 40 MILLIGRAM DAILY; 40 MG, 1-0-0-0
  7. METRONIDAZOLE. [Suspect]
     Active Substance: METRONIDAZOLE
     Dosage: 1200 MILLIGRAM DAILY; 400 MG, 1-1-1-0

REACTIONS (3)
  - Wound [Unknown]
  - Blister [Unknown]
  - Condition aggravated [Unknown]
